FAERS Safety Report 17903646 (Version 3)
Quarter: 2020Q3

REPORT INFORMATION
  Report Type: Spontaneous
  Country: FR (occurrence: FR)
  Receive Date: 20200616
  Receipt Date: 20200703
  Transmission Date: 20201103
  Serious: Yes (Other)
  Sender: FDA-Public Use
  Company Number: FR-BAUSCH-BL-2020-016787

PATIENT
  Age: 64 Year
  Sex: Female

DRUGS (3)
  1. LEVOTHYROX [Suspect]
     Active Substance: LEVOTHYROXINE
     Dosage: STARTED AT LEAST 10 YEARS AGO, ONE 100 MICROGRAM AND HALF 25 MICROGRAM TABLET IN THE MORNING
     Route: 065
  2. CARTEOL LP 1 %, COLLYRE ? LIB?RATION PROLONG?E EN R?CIPIENT UNIDOSE [Suspect]
     Active Substance: CARTEOLOL HYDROCHLORIDE
     Indication: GLAUCOMA
     Dosage: ONE DROP IN EACH EYE IN THE MORNING?STOPPED IN NINETEENTH WEEK OF 2020
     Route: 047
     Dates: start: 201607, end: 20200512
  3. LEVOTHYROX [Suspect]
     Active Substance: LEVOTHYROXINE
     Indication: THYROID DISORDER
     Dosage: STARTED AT LEAST 10 YEARS AGO, ONE 100 MICROGRAM AND HALF 25 MICROGRAM TABLET IN THE MORNING
     Route: 065

REACTIONS (13)
  - Swelling face [Recovered/Resolved]
  - Dyspnoea [Recovered/Resolved]
  - Condition aggravated [Recovered/Resolved]
  - Dysphagia [Recovered/Resolved]
  - Middle insomnia [Recovered/Resolved]
  - Vision blurred [Recovered/Resolved]
  - Mouth swelling [Recovered/Resolved]
  - Hypoaesthesia [Recovered/Resolved]
  - Pain [Recovered/Resolved]
  - Headache [Recovered/Resolved]
  - Swollen tongue [Recovered/Resolved]
  - Malaise [Recovered/Resolved]
  - Vertigo [Recovered/Resolved]

NARRATIVE: CASE EVENT DATE: 2019
